FAERS Safety Report 6280587-7 (Version None)
Quarter: 2009Q3

REPORT INFORMATION
  Report Type: 
  Country: None (occurrence: None)
  Receive Date: 20090724
  Receipt Date: 20080912
  Transmission Date: 20100115
  Serious: Yes (Other)
  Sender: FDA-Public Use
  Company Number: A0748256A

PATIENT
  Age: 51 Year
  Sex: Male
  Weight: 113.6 kg

DRUGS (7)
  1. AVANDIA [Suspect]
     Indication: DIABETES MELLITUS
     Dosage: 4MG PER DAY
     Route: 048
     Dates: start: 20050303, end: 20070519
  2. METFORMIN HCL [Concomitant]
  3. GLUCOPHAGE [Concomitant]
  4. LANTUS [Concomitant]
  5. ATENOLOL [Concomitant]
  6. LOVASTATIN [Concomitant]
  7. LIPITOR [Concomitant]

REACTIONS (1)
  - CARDIAC FAILURE CONGESTIVE [None]
